FAERS Safety Report 15757674 (Version 1)
Quarter: 2018Q4

REPORT INFORMATION
  Report Type: Spontaneous
  Country: BE (occurrence: BE)
  Receive Date: 20181225
  Receipt Date: 20181225
  Transmission Date: 20190205
  Serious: Yes (Hospitalization, Other)
  Sender: FDA-Public Use
  Company Number: BE-AUROBINDO-AUR-APL-2018-057311

PATIENT

DRUGS (3)
  1. LINEZOLID. [Suspect]
     Active Substance: LINEZOLID
     Indication: INFECTION
     Dosage: 6000 MILLIGRAM, TWO TIMES A DAY
     Route: 065
  2. DULOXETINE. [Suspect]
     Active Substance: DULOXETINE
     Indication: INFECTION
     Dosage: 60 MG, QD
     Route: 065
  3. TRAZODONE [Suspect]
     Active Substance: TRAZODONE HYDROCHLORIDE
     Indication: INFECTION
     Dosage: 100 MG, QD
     Route: 065

REACTIONS (6)
  - Serotonin syndrome [Recovered/Resolved]
  - Agitation [Recovered/Resolved]
  - Contraindicated product administered [Recovered/Resolved]
  - Drug interaction [Recovered/Resolved]
  - Infection [Recovered/Resolved]
  - Delirium [Recovered/Resolved]
